FAERS Safety Report 23365145 (Version 2)
Quarter: 2024Q2

REPORT INFORMATION
  Report Type: Spontaneous
  Country: FR (occurrence: FR)
  Receive Date: 20240104
  Receipt Date: 20240518
  Transmission Date: 20240716
  Serious: Yes (Other)
  Sender: FDA-Public Use
  Company Number: FR-TEVA-VS-3138501

PATIENT
  Age: 19 Year

DRUGS (4)
  1. METHOTREXATE [Suspect]
     Active Substance: METHOTREXATE
     Indication: Acute biphenotypic leukaemia
     Dosage: 4 CONSOLIDATION COURSES
     Route: 065
  2. VINCRISTINE [Concomitant]
     Active Substance: VINCRISTINE
     Indication: Acute biphenotypic leukaemia
     Dosage: 4 CONSOLIDATION COURSES
     Route: 065
  3. MERCAPTOPURINE [Concomitant]
     Active Substance: MERCAPTOPURINE
     Indication: Acute biphenotypic leukaemia
     Route: 065
  4. DARATUMUMAB [Concomitant]
     Active Substance: DARATUMUMAB
     Indication: Acute biphenotypic leukaemia
     Dosage: WEEKLY
     Route: 058

REACTIONS (4)
  - Drug-induced liver injury [Unknown]
  - Cholestasis [Unknown]
  - Hepatic steatosis [Unknown]
  - Hepatic cytolysis [Unknown]
